FAERS Safety Report 5048145-X (Version None)
Quarter: 2006Q2

REPORT INFORMATION
  Report Type: 
  Country: None (occurrence: None)
  Receive Date: 20060601
  Receipt Date: 20060321
  Transmission Date: 20061013
  Serious: No
  Sender: FDA-Public Use
  Company Number: 2006PV010624

PATIENT
  Age: 64 Year
  Sex: Female
  Weight: 96.1626 kg

DRUGS (10)
  1. BYETTA [Suspect]
     Indication: DIABETES MELLITUS NON-INSULIN-DEPENDENT
     Dosage: SEE IMAGE
     Route: 058
     Dates: start: 20060222, end: 20060228
  2. BYETTA [Suspect]
     Indication: DIABETES MELLITUS NON-INSULIN-DEPENDENT
     Dosage: SEE IMAGE
     Route: 058
     Dates: start: 20060301
  3. ASPIRIN [Concomitant]
  4. PLAVIX [Concomitant]
  5. METOPROLOL TARTRATE [Concomitant]
  6. DIOVAN [Concomitant]
  7. GLYBURIDE [Concomitant]
  8. LANTUS [Concomitant]
  9. NORVASC [Concomitant]
  10. BUMEX [Concomitant]

REACTIONS (5)
  - BLOOD GLUCOSE DECREASED [None]
  - DIZZINESS [None]
  - HYPOAESTHESIA ORAL [None]
  - TREMOR [None]
  - VISION BLURRED [None]
